FAERS Safety Report 13757281 (Version 7)
Quarter: 2018Q2

REPORT INFORMATION
  Report Type: Spontaneous
  Country: JP (occurrence: JP)
  Receive Date: 20170716
  Receipt Date: 20180409
  Transmission Date: 20180711
  Serious: Yes (Death)
  Sender: FDA-Public Use
  Company Number: JP-AMGEN-ITASP2017107681

PATIENT
  Age: 29 Year
  Sex: Female
  Weight: 58 kg

DRUGS (2)
  1. XGEVA [Suspect]
     Active Substance: DENOSUMAB
     Indication: BONE GIANT CELL TUMOUR
     Dosage: 120 MG, QWK, FOR FIRST MONTH
     Route: 058
     Dates: start: 20150714
  2. XGEVA [Suspect]
     Active Substance: DENOSUMAB
     Dosage: 120 MG, QWK, FOR SIX MONTHS
     Route: 058
     Dates: end: 20160118

REACTIONS (2)
  - Malignant transformation [Fatal]
  - Metastases to lung [Fatal]

NARRATIVE: CASE EVENT DATE: 201512
